FAERS Safety Report 8965680 (Version 2)
Quarter: 2013Q1

REPORT INFORMATION
  Report Type: Spontaneous
  Country: US (occurrence: None)
  Receive Date: 20121206
  Receipt Date: 20130129
  Transmission Date: 20140127
  Serious: Yes (Death, Hospitalization)
  Sender: FDA-Public Use
  Company Number: 2012AP004062

PATIENT
  Age: 75 Year
  Sex: Male

DRUGS (8)
  1. FLUCONAZOLE [Suspect]
     Indication: ANTIFUNGAL PROPHYLAXIS
  2. LEVOFLOXACIN [Suspect]
     Indication: ANTIBIOTIC PROPHYLAXIS
  3. VORICONAZOLE [Suspect]
     Indication: ANTIFUNGAL PROPHYLAXIS
  4. CASPOFUNGIN [Suspect]
     Route: 042
  5. POSACONAZOLE [Suspect]
     Route: 048
  6. VALACICLOVIR [Concomitant]
  7. FLUDARABINE [Concomitant]
  8. CYTARABINE [Concomitant]

REACTIONS (7)
  - Drug ineffective [None]
  - Febrile neutropenia [None]
  - Chondrocalcinosis [None]
  - Arthritis bacterial [None]
  - Candida infection [None]
  - Bronchopneumonia [None]
  - Septic shock [None]
